FAERS Safety Report 6721650-3 (Version None)
Quarter: 2010Q2

REPORT INFORMATION
  Report Type: 
  Country: None (occurrence: None)
  Receive Date: 20100512
  Receipt Date: 20100427
  Transmission Date: 20101027
  Serious: Yes (Other)
  Sender: FDA-Public Use
  Company Number: US-SANOFI-AVENTIS-2010SA000645

PATIENT
  Age: 69 Year
  Sex: Male

DRUGS (4)
  1. MULTAQ [Suspect]
     Route: 048
     Dates: start: 20091130, end: 20091201
  2. MULTAQ [Suspect]
     Indication: CARDIAC ABLATION
     Route: 048
     Dates: start: 20091130, end: 20091201
  3. CARDIZEM [Concomitant]
     Route: 065
     Dates: start: 20091130
  4. METOPROLOL TARTRATE [Concomitant]
     Route: 065
     Dates: start: 20091123, end: 20091201

REACTIONS (4)
  - CARDIAC FAILURE [None]
  - CONDITION AGGRAVATED [None]
  - DYSPNOEA [None]
  - OEDEMA PERIPHERAL [None]
